FAERS Safety Report 15589797 (Version 1)
Quarter: 2018Q4

REPORT INFORMATION
  Report Type: Spontaneous
  Country: MX (occurrence: MX)
  Receive Date: 20181106
  Receipt Date: 20181106
  Transmission Date: 20190205
  Serious: Yes (Other)
  Sender: FDA-Public Use
  Company Number: MX-APOTEX-2018AP024075

PATIENT
  Sex: Male

DRUGS (2)
  1. MENURAL [Suspect]
     Active Substance: MEMANTINE HYDROCHLORIDE
     Indication: COGNITIVE DISORDER
     Dosage: 10 MG, QD( EVERY 24 HOURLY), AT NIGHT
     Route: 048
  2. MENURAL [Suspect]
     Active Substance: MEMANTINE HYDROCHLORIDE
     Indication: SLEEP DISORDER

REACTIONS (2)
  - Somnolence [Recovered/Resolved]
  - Memory impairment [Recovered/Resolved]

NARRATIVE: CASE EVENT DATE: 2018
